FAERS Safety Report 12483914 (Version 1)
Quarter: 2016Q2

REPORT INFORMATION
  Report Type: Spontaneous
  Country: US (occurrence: US)
  Receive Date: 20160621
  Receipt Date: 20160621
  Transmission Date: 20160815
  Serious: No
  Sender: FDA-Public Use
  Company Number: US-ZYDUS-010098

PATIENT
  Age: 76 Year
  Sex: Male

DRUGS (2)
  1. TAMSULOSIN/TAMSULOSIN HYDROCHLORIDE [Suspect]
     Active Substance: TAMSULOSIN HYDROCHLORIDE
     Indication: BENIGN PROSTATIC HYPERPLASIA
     Route: 048
     Dates: start: 201512
  2. SOLIFENACIN [Concomitant]
     Active Substance: SOLIFENACIN

REACTIONS (4)
  - Urinary incontinence [None]
  - Product quality issue [None]
  - Pollakiuria [None]
  - Drug ineffective [Not Recovered/Not Resolved]

NARRATIVE: CASE EVENT DATE: 201601
